FAERS Safety Report 14324984 (Version 1)
Quarter: 2017Q4

REPORT INFORMATION
  Report Type: Spontaneous
  Country: US (occurrence: US)
  Receive Date: 20171223
  Receipt Date: 20171223
  Transmission Date: 20180321
  Serious: No
  Sender: FDA-Public Use
  Company Number: None

PATIENT
  Age: 54 Year
  Sex: Female
  Weight: 68.4 kg

DRUGS (9)
  1. SYNTHROID [Concomitant]
     Active Substance: LEVOTHYROXINE SODIUM
  2. CALCIUM 600 [Concomitant]
  3. PAROXETINE MESYLATE 7.5MG [Suspect]
     Active Substance: PAROXETINE MESYLATE
     Indication: MENOPAUSAL SYMPTOMS
     Dosage: ?          QUANTITY:90 CAPSULE(S);?
     Route: 048
     Dates: start: 20171102
  4. VITAMIN D [Concomitant]
     Active Substance: CHOLECALCIFEROL
  5. FISH OIL [Concomitant]
     Active Substance: FISH OIL
  6. BIOTIN [Concomitant]
     Active Substance: BIOTIN
  7. TRAZEDONE [Concomitant]
  8. PAROXETINE MESYLATE 7.5MG [Suspect]
     Active Substance: PAROXETINE MESYLATE
     Indication: HOT FLUSH
     Dosage: ?          QUANTITY:90 CAPSULE(S);?
     Route: 048
     Dates: start: 20171102
  9. MULTI VITAMIN CENTRUM SILVER [Concomitant]

REACTIONS (7)
  - Sleep disorder due to general medical condition, insomnia type [None]
  - Disease recurrence [None]
  - Feeling abnormal [None]
  - Nausea [None]
  - Hot flush [None]
  - Drug ineffective [None]
  - Product substitution issue [None]
